FAERS Safety Report 22851412 (Version 10)
Quarter: 2024Q1

REPORT INFORMATION
  Report Type: Report from Study
  Country: JP (occurrence: JP)
  Receive Date: 20230822
  Receipt Date: 20240205
  Transmission Date: 20240409
  Serious: Yes (Hospitalization, Other)
  Sender: FDA-Public Use
  Company Number: JP-JNJFOC-20230830323

PATIENT
  Age: 75 Year
  Sex: Female

DRUGS (7)
  1. BORTEZOMIB [Suspect]
     Active Substance: BORTEZOMIB
     Indication: Plasma cell myeloma
     Dosage: UNK
     Route: 058
     Dates: start: 202307
  2. DARATUMUMAB [Suspect]
     Active Substance: DARATUMUMAB
     Indication: Plasma cell myeloma
     Dosage: UNK
     Route: 058
     Dates: start: 202307, end: 2023
  3. DARATUMUMAB [Suspect]
     Active Substance: DARATUMUMAB
     Dosage: UNK
     Route: 058
     Dates: start: 20230912, end: 2023
  4. DARATUMUMAB [Suspect]
     Active Substance: DARATUMUMAB
     Dosage: UNK
     Route: 058
     Dates: start: 20230919
  5. DARATUMUMAB [Suspect]
     Active Substance: DARATUMUMAB
     Dosage: UNK
     Route: 058
     Dates: start: 20231010
  6. LOXOPROFEN SODIUM [Concomitant]
     Active Substance: LOXOPROFEN SODIUM
     Indication: Pain
     Dosage: UNK
     Route: 062
  7. INFLUENZA VIRUS VACCINE [Concomitant]
     Active Substance: INFLUENZA VIRUS VACCINE
     Indication: Prophylaxis
     Dosage: UNK
     Route: 065
     Dates: start: 20231002, end: 20231002

REACTIONS (35)
  - Dry skin [Not Recovered/Not Resolved]
  - Rash macular [Recovering/Resolving]
  - Productive cough [Recovering/Resolving]
  - Blood calcium decreased [Not Recovered/Not Resolved]
  - Hypophagia [Recovered/Resolved]
  - Taste disorder [Not Recovered/Not Resolved]
  - Decreased immune responsiveness [Not Recovered/Not Resolved]
  - Blood pressure increased [Recovering/Resolving]
  - Feeling abnormal [Recovered/Resolved]
  - Blood potassium increased [Recovering/Resolving]
  - Pollakiuria [Not Recovered/Not Resolved]
  - Stress [Not Recovered/Not Resolved]
  - Bradyphrenia [Not Recovered/Not Resolved]
  - Waist circumference increased [Not Recovered/Not Resolved]
  - Ear dryness [Not Recovered/Not Resolved]
  - Internal haemorrhage [Recovered/Resolved]
  - Weight increased [Recovered/Resolved]
  - Skin atrophy [Not Recovered/Not Resolved]
  - Insomnia [Recovered/Resolved]
  - Decreased appetite [Recovered/Resolved]
  - Back pain [Not Recovered/Not Resolved]
  - Anaemia [Not Recovered/Not Resolved]
  - Asthenia [Not Recovered/Not Resolved]
  - Cough [Recovering/Resolving]
  - Pruritus [Recovered/Resolved]
  - Weight decreased [Recovered/Resolved]
  - Hypoacusis [Not Recovered/Not Resolved]
  - Injection site erythema [Recovered/Resolved]
  - Myalgia [Recovering/Resolving]
  - Musculoskeletal stiffness [Not Recovered/Not Resolved]
  - Fatigue [Not Recovered/Not Resolved]
  - Hospitalisation [Unknown]
  - Dermatitis contact [Not Recovered/Not Resolved]
  - Dizziness [Not Recovered/Not Resolved]
  - Off label use [Recovered/Resolved]

NARRATIVE: CASE EVENT DATE: 20230101
